FAERS Safety Report 8905477 (Version 1)
Quarter: 2012Q4

REPORT INFORMATION
  Report Type: 
  Country: US (occurrence: US)
  Receive Date: 20121112
  Receipt Date: 20121112
  Transmission Date: 20130627
  Serious: Yes (Hospitalization)
  Sender: FDA-Public Use
  Company Number: US-BAYER-2012-116413

PATIENT
  Age: 28 Year
  Sex: Female
  Weight: 83.45 kg

DRUGS (17)
  1. ACETAMINOPHEN W/OXYCODONE [Concomitant]
     Dosage: 10-500 mg
     Route: 048
  2. ONDANSETRON [Concomitant]
     Dosage: 8 mg, UNK
     Route: 048
  3. ZYRTEC [Concomitant]
     Dosage: 5 mg, UNK
     Route: 048
  4. FLAGYL [Concomitant]
     Indication: LYMPHADENOPATHY
  5. FLAGYL [Concomitant]
     Indication: SIALOADENITIS
  6. YAZ [Suspect]
     Indication: CONTRACEPTION
  7. GIANVI [Suspect]
  8. MEDROL [Concomitant]
  9. PENICILLIN VK [Concomitant]
     Dosage: 500 mg, UNK
     Route: 048
  10. CEPHALEXIN [Concomitant]
     Dosage: 500 mg, UNK
     Route: 048
  11. NAPROXEN [Concomitant]
     Dosage: 500 mg, UNK
     Route: 048
  12. HYDROCODONE W/ACETAMINOPHEN [Concomitant]
     Dosage: 5-500 mg
     Route: 048
  13. PREDNISONE [Concomitant]
     Dosage: 20 mg, UNK
     Route: 048
  14. CEFUROXIME [Concomitant]
     Dosage: 500 mg, UNK
     Route: 048
  15. CLINDAMYCIN [Concomitant]
     Indication: LYMPHADENOPATHY
     Dosage: 300 mg, UNK
     Route: 048
  16. CLINDAMYCIN [Concomitant]
     Indication: SIALOADENITIS
  17. DOXYCYCLINE [Concomitant]

REACTIONS (1)
  - Pulmonary embolism [None]
